FAERS Safety Report 11059682 (Version 1)
Quarter: 2015Q2

REPORT INFORMATION
  Report Type: Report from Study
  Country: IT (occurrence: IT)
  Receive Date: 20150423
  Receipt Date: 20150423
  Transmission Date: 20150821
  Serious: Yes (Hospitalization)
  Sender: FDA-Public Use
  Company Number: IT-ABBVIE-15P-083-1371293-00

PATIENT
  Age: 27 Year
  Sex: Female
  Weight: 54 kg

DRUGS (3)
  1. BARNIDIPINE HCL [Concomitant]
     Active Substance: BARNIDIPINE
     Indication: HYPERTENSION
     Route: 048
     Dates: start: 20150307, end: 20150407
  2. ABT-333 [Suspect]
     Active Substance: DASABUVIR
     Indication: CHRONIC HEPATITIS C
     Route: 048
     Dates: start: 20150326, end: 20150407
  3. ABT-450/RITONAVIR/ABT-267 [Suspect]
     Active Substance: OMBITASVIR\PARITAPREVIR\RITONAVIR
     Indication: CHRONIC HEPATITIS C
     Route: 048
     Dates: start: 20150326, end: 20150407

REACTIONS (5)
  - Renal failure [Unknown]
  - Pruritus [Unknown]
  - Malaise [Unknown]
  - Hypotension [Unknown]
  - Anaemia [Unknown]

NARRATIVE: CASE EVENT DATE: 20150407
